FAERS Safety Report 6464669-2 (Version None)
Quarter: 2009Q4

REPORT INFORMATION
  Report Type: 
  Country: None (occurrence: None)
  Receive Date: 20091201
  Receipt Date: 20091130
  Transmission Date: 20100525
  Serious: Yes (Death, Hospitalization)
  Sender: FDA-Public Use
  Company Number: US-JNJFOC-20060901921

PATIENT
  Age: 37 Year
  Sex: Female

DRUGS (3)
  1. ACETAMINOPHEN [Suspect]
     Route: 048
  2. ACETAMINOPHEN [Suspect]
     Indication: ABDOMINAL PAIN
     Dosage: 2-3 TABS EVERY 2-3 HOURS
     Route: 048
  3. ACETAMINOPHEN, ASPIRIN AND CAFFEINE [Suspect]
     Indication: ABDOMINAL PAIN
     Dosage: 2-3 TABS EVERY 2-3 HOURS
     Route: 048

REACTIONS (10)
  - ACCIDENTAL OVERDOSE [None]
  - DISSEMINATED INTRAVASCULAR COAGULATION [None]
  - DRUG ADMINISTRATION ERROR [None]
  - DRUG EXPOSURE DURING PREGNANCY [None]
  - ENCEPHALOPATHY [None]
  - GASTROINTESTINAL HAEMORRHAGE [None]
  - HEPATIC FUNCTION ABNORMAL [None]
  - INTRA-UTERINE DEATH [None]
  - PANCREATITIS [None]
  - SEPSIS [None]
